FAERS Safety Report 8534721-6 (Version None)
Quarter: 2012Q3

REPORT INFORMATION
  Report Type: 
  Country: None (occurrence: None)
  Receive Date: 20120724
  Receipt Date: 20120716
  Transmission Date: 20120928
  Serious: Yes (Other)
  Sender: FDA-Public Use
  Company Number: US-GLAXOSMITHKLINE-A0986380A

PATIENT
  Sex: Female

DRUGS (1)
  1. PAROXETINE [Suspect]
     Route: 065

REACTIONS (5)
  - ANXIETY [None]
  - SUICIDAL IDEATION [None]
  - DEPRESSION [None]
  - CRYING [None]
  - FEELING OF DESPAIR [None]
